FAERS Safety Report 21803132 (Version 1)
Quarter: 2022Q4

REPORT INFORMATION
  Report Type: Report from Study
  Country: BR (occurrence: BR)
  Receive Date: 20221231
  Receipt Date: 20221231
  Transmission Date: 20230113
  Serious: Yes (Hospitalization, Other)
  Sender: FDA-Public Use
  Company Number: BR-JNJFOC-20221259507

PATIENT
  Age: 65 Year
  Sex: Male
  Weight: 72 kg

DRUGS (2)
  1. REMICADE [Suspect]
     Active Substance: INFLIXIMAB
     Indication: Crohn^s disease
     Route: 041
  2. LOSARTAN [Concomitant]
     Active Substance: LOSARTAN
     Indication: Product used for unknown indication

REACTIONS (6)
  - Seizure [Unknown]
  - Paralysis [Unknown]
  - Peripheral swelling [Unknown]
  - Malaise [Unknown]
  - Infusion related reaction [Unknown]
  - Arthropathy [Unknown]

NARRATIVE: CASE EVENT DATE: 20220401
